FAERS Safety Report 7733485-3 (Version None)
Quarter: 2011Q3

REPORT INFORMATION
  Report Type: 
  Country: None (occurrence: None)
  Receive Date: 20110902
  Receipt Date: 20110902
  Transmission Date: 20111222
  Serious: No
  Sender: FDA-Public Use
  Company Number: None

PATIENT
  Sex: Female
  Weight: 60.782 kg

DRUGS (1)
  1. DOXYCYCLINE [Suspect]
     Indication: SKIN INFECTION
     Dosage: 1 CAPSULE TWICE A DAY MOUTH
     Route: 048
     Dates: start: 20101220, end: 20101224

REACTIONS (2)
  - OESOPHAGEAL DISCOMFORT [None]
  - PAIN [None]
